FAERS Safety Report 7073660-7 (Version None)
Quarter: 2010Q4

REPORT INFORMATION
  Report Type: 
  Country: None (occurrence: None)
  Receive Date: 20101029
  Receipt Date: 20100812
  Transmission Date: 20110411
  Serious: No
  Sender: FDA-Public Use
  Company Number: A0872528A

PATIENT
  Age: 80 Year
  Sex: Female

DRUGS (10)
  1. ADVAIR DISKUS 100/50 [Suspect]
     Indication: CHRONIC OBSTRUCTIVE PULMONARY DISEASE
     Dosage: 2PUFF TWICE PER DAY
     Route: 055
     Dates: start: 20100611
  2. AMLODIPINE [Concomitant]
  3. PLAVIX [Concomitant]
  4. POTASSIUM CHLORIDE [Concomitant]
  5. PREDNISONE [Concomitant]
  6. FUROSEMIDE [Concomitant]
  7. UNKNOWN MEDICATION [Concomitant]
  8. KLOR-CON [Concomitant]
  9. VITAMINS [Concomitant]
  10. ASPIRIN [Concomitant]

REACTIONS (2)
  - DYSPNOEA [None]
  - PRODUCT QUALITY ISSUE [None]
